FAERS Safety Report 25920309 (Version 4)
Quarter: 2025Q4

REPORT INFORMATION
  Report Type: Spontaneous
  Country: US (occurrence: US)
  Receive Date: 20251014
  Receipt Date: 20251023
  Transmission Date: 20260118
  Serious: No
  Sender: SANDOZ
  Company Number: US-SANDOZ-SDZ2025US073827

PATIENT
  Age: 55 Year
  Sex: Female
  Weight: 68.027 kg

DRUGS (3)
  1. COMBIPATCH [Suspect]
     Active Substance: ESTRADIOL\NORETHINDRONE ACETATE
     Indication: Alopecia
     Dosage: 0.05/0.14 MG, UNKNOWN
     Route: 062
     Dates: start: 202510
  2. COMBIPATCH [Suspect]
     Active Substance: ESTRADIOL\NORETHINDRONE ACETATE
     Indication: Menopausal symptoms
     Dosage: 0.05/0.14 MG, UNKNOWN
     Route: 062
     Dates: start: 202508
  3. COMBIPATCH [Suspect]
     Active Substance: ESTRADIOL\NORETHINDRONE ACETATE
     Indication: Off label use

REACTIONS (11)
  - Irritability [Recovered/Resolved]
  - Application site erosion [Recovered/Resolved]
  - Application site erythema [Recovered/Resolved]
  - Application site pruritus [Recovered/Resolved]
  - Application site pain [Recovered/Resolved]
  - Wrong technique in product usage process [Recovered/Resolved]
  - Product administered at inappropriate site [Not Recovered/Not Resolved]
  - Adhesive tape use [Recovered/Resolved]
  - Product adhesion issue [Recovered/Resolved]
  - Device issue [Recovered/Resolved]
  - Off label use [Not Recovered/Not Resolved]

NARRATIVE: CASE EVENT DATE: 20250801
